FAERS Safety Report 7193406 (Version 3)
Quarter: 2012Q4

REPORT INFORMATION
  Report Type: 
  Country: US (occurrence: US)
  Receive Date: 20091130
  Receipt Date: 20121213
  Transmission Date: 20130627
  Serious: Yes (Other)
  Sender: FDA-Public Use
  Company Number: US-BAYER-200940902NA

PATIENT
  Sex: Male
  Weight: 2.59 kg

DRUGS (1)
  1. TRASYLOL [Suspect]
     Indication: CORONARY ARTERY BYPASS GRAFT
     Dosage: UNK
     Route: 042
     Dates: start: 20040529

REACTIONS (17)
  - Multi-organ failure [Unknown]
  - Renal injury [Unknown]
  - Renal failure [Unknown]
  - Renal failure [None]
  - Renal impairment [None]
  - Injury [Unknown]
  - Anxiety [Unknown]
  - Unevaluable event [Unknown]
  - Fear [Unknown]
  - Pain [Unknown]
  - Unevaluable event [Unknown]
  - Depression [Unknown]
  - Anhedonia [Unknown]
  - Disability [Unknown]
  - Anxiety [Unknown]
  - Stress [None]
  - Emotional disorder [None]
